FAERS Safety Report 15397657 (Version 1)
Quarter: 2018Q3

REPORT INFORMATION
  Report Type: Spontaneous
  Country: US (occurrence: US)
  Receive Date: 20180918
  Receipt Date: 20180918
  Transmission Date: 20181010
  Serious: Yes (Death, Other)
  Sender: FDA-Public Use
  Company Number: US-PFIZER INC-2018374723

PATIENT
  Age: 47 Year
  Sex: Male

DRUGS (3)
  1. OPANA [Concomitant]
     Active Substance: OXYMORPHONE HYDROCHLORIDE
  2. OXYCODONE [Concomitant]
     Active Substance: OXYCODONE
  3. LYRICA [Suspect]
     Active Substance: PREGABALIN
     Indication: DIABETES MELLITUS
     Dosage: 75 MG, 3X/DAY

REACTIONS (5)
  - Hepatic cancer [Fatal]
  - Peripheral swelling [Unknown]
  - Bladder cancer [Fatal]
  - Muscular weakness [Unknown]
  - Product use in unapproved indication [Unknown]
